FAERS Safety Report 24076027 (Version 2)
Quarter: 2024Q3

REPORT INFORMATION
  Report Type: Spontaneous
  Country: US (occurrence: None)
  Receive Date: 20240710
  Receipt Date: 20240901
  Transmission Date: 20241017
  Serious: No
  Sender: ASTRAZENECA
  Company Number: 2024A157595

PATIENT
  Sex: Female

DRUGS (1)
  1. BYDUREON BCISE [Suspect]
     Active Substance: EXENATIDE

REACTIONS (7)
  - Abdominal discomfort [Recovered/Resolved]
  - Nausea [Unknown]
  - Weight decreased [Unknown]
  - Joint stiffness [Unknown]
  - Arthralgia [Unknown]
  - Device leakage [Unknown]
  - Drug dose omission by device [Unknown]
